FAERS Safety Report 13591301 (Version 1)
Quarter: 2017Q2

REPORT INFORMATION
  Report Type: Report from Study
  Country: US (occurrence: US)
  Receive Date: 20170530
  Receipt Date: 20170530
  Transmission Date: 20170830
  Serious: Yes (Death, Other)
  Sender: FDA-Public Use
  Company Number: US-GILEAD-2017-0275133

PATIENT
  Age: 80 Year
  Sex: Male

DRUGS (12)
  1. ULORIC [Concomitant]
     Active Substance: FEBUXOSTAT
  2. JAKAFI [Concomitant]
     Active Substance: RUXOLITINIB
  3. MELATONIN [Concomitant]
     Active Substance: MELATONIN
  4. CALCIUM MAGNESIUM                  /00591201/ [Concomitant]
  5. VITAMIN D3 [Concomitant]
     Active Substance: CHOLECALCIFEROL
  6. TYLENOL [Concomitant]
     Active Substance: ACETAMINOPHEN
  7. TAMSULOSIN [Concomitant]
     Active Substance: TAMSULOSIN
  8. LANOXIN [Concomitant]
     Active Substance: DIGOXIN
  9. RAPAFLO [Concomitant]
     Active Substance: SILODOSIN
  10. AMBRISENTAN [Suspect]
     Active Substance: AMBRISENTAN
     Indication: PULMONARY HYPERTENSION
     Dosage: 10 MG, QD
     Route: 065
     Dates: start: 20120727, end: 20170524
  11. ESTER C                            /00008001/ [Concomitant]
  12. B-COMPLEX                          /00302401/ [Concomitant]

REACTIONS (1)
  - Death [Fatal]

NARRATIVE: CASE EVENT DATE: 20170524
